FAERS Safety Report 24879364 (Version 1)
Quarter: 2025Q1

REPORT INFORMATION
  Report Type: Report from Study
  Country: US (occurrence: US)
  Receive Date: 20250123
  Receipt Date: 20250123
  Transmission Date: 20250408
  Serious: Yes (Death, Other)
  Sender: ACADIA PHARMACEUTICALS
  Company Number: US-ACADIA PHARMACEUTICALS INC.-ACA-2025-PIM-000445

PATIENT
  Age: 86 Year
  Sex: Male

DRUGS (14)
  1. NUPLAZID [Suspect]
     Active Substance: PIMAVANSERIN TARTRATE
     Indication: Parkinson^s disease
     Dosage: 34 MILLIGRAM, QD
     Route: 048
     Dates: start: 20240220
  2. ALPHAGAN P [Concomitant]
     Active Substance: BRIMONIDINE TARTRATE
  3. ATENOLOL [Concomitant]
     Active Substance: ATENOLOL
  4. ELIQUIS [Concomitant]
     Active Substance: APIXABAN
  5. EZETIMIBE ABZ [Concomitant]
  6. LATANOPROST [Concomitant]
     Active Substance: LATANOPROST
  7. LISINOPRIL [Concomitant]
     Active Substance: LISINOPRIL
  8. MEMANTINE ABDI [Concomitant]
  9. MINERALS\VITAMINS [Concomitant]
     Active Substance: MINERALS\VITAMINS
  10. SENNA TABS [Concomitant]
     Active Substance: SENNOSIDES A AND B
  11. SERTRALINE HYDROCHLORIDE [Concomitant]
     Active Substance: SERTRALINE HYDROCHLORIDE
  12. SINEMET CR [Concomitant]
     Active Substance: CARBIDOPA\LEVODOPA
  13. TRADJENTA [Concomitant]
     Active Substance: LINAGLIPTIN
  14. VITAMIN D3 [Concomitant]
     Active Substance: CHOLECALCIFEROL

REACTIONS (1)
  - Death [Fatal]

NARRATIVE: CASE EVENT DATE: 20241223
